FAERS Safety Report 21960589 (Version 2)
Quarter: 2023Q1

REPORT INFORMATION
  Report Type: Report from Study
  Country: US (occurrence: US)
  Receive Date: 20230207
  Receipt Date: 20230216
  Transmission Date: 20230418
  Serious: Yes (Hospitalization)
  Sender: FDA-Public Use
  Company Number: US-GBT-019801

PATIENT
  Age: 25 Year
  Sex: Male

DRUGS (7)
  1. OXBRYTA [Suspect]
     Active Substance: VOXELOTOR
     Indication: Anaemia
     Dates: start: 20200109
  2. Buprenorphine (Butrans) 10 mcg/hr transdermal patch [Concomitant]
     Indication: Sickle cell disease
     Dosage: APPLY 1 PATCH EVERY WEEK
     Route: 062
     Dates: start: 20220629
  3. GABAPENTIN [Concomitant]
     Active Substance: GABAPENTIN
     Indication: Sickle cell disease
     Dosage: TIME INTERVAL: 0.33333333 DAYS
     Route: 048
     Dates: start: 20211220
  4. GLUTAMINE [Concomitant]
     Active Substance: GLUTAMINE
     Indication: Sickle cell disease
     Route: 050
     Dates: start: 20190603
  5. HYDROXYUREA [Concomitant]
     Active Substance: HYDROXYUREA
     Indication: Sickle cell disease
     Route: 048
     Dates: start: 20160926
  6. OXYCODONE [Concomitant]
     Active Substance: OXYCODONE
     Indication: Sickle cell disease
     Dosage: Q4H PRN
     Route: 048
     Dates: start: 20211220
  7. Ergocalciferol (Vitamin D2) 50,000 Unit capsule [Concomitant]
     Indication: Vitamin D deficiency
     Dosage: 5000 UNITE

REACTIONS (1)
  - Sickle cell anaemia with crisis [Recovered/Resolved]

NARRATIVE: CASE EVENT DATE: 20230126
